FAERS Safety Report 4386273-2 (Version None)
Quarter: 2004Q2

REPORT INFORMATION
  Report Type: 
  Country: None (occurrence: None)
  Receive Date: 20040622
  Receipt Date: 20040608
  Transmission Date: 20050107
  Serious: Yes (Hospitalization)
  Sender: FDA-Public Use
  Company Number: S04-BEL-02085-02

PATIENT
  Age: 0 Day
  Sex: Female
  Weight: 3.6 kg

DRUGS (1)
  1. CIPRAMIL (CITALOPRAM HYDROBROMIDE) [Suspect]
     Dosage: 20 MG QD TRANSPLACENTAL
     Route: 064
     Dates: start: 20010301, end: 20040325

REACTIONS (12)
  - AGITATION NEONATAL [None]
  - APGAR SCORE LOW [None]
  - DRUG EXPOSURE DURING PREGNANCY [None]
  - FEELING JITTERY [None]
  - HYPOTONIA NEONATAL [None]
  - IRRITABILITY [None]
  - NEONATAL APNOEIC ATTACK [None]
  - NEONATAL DISORDER [None]
  - NEONATAL RESPIRATORY DISTRESS SYNDROME [None]
  - POOR SUCKING REFLEX [None]
  - TREMOR NEONATAL [None]
  - VACUUM EXTRACTOR DELIVERY [None]
